FAERS Safety Report 21139810 (Version 1)
Quarter: 2022Q3

REPORT INFORMATION
  Report Type: Other
  Country: US (occurrence: US)
  Receive Date: 20220728
  Receipt Date: 20220728
  Transmission Date: 20221027
  Serious: Yes (Other)
  Sender: FDA-Public Use
  Company Number: US-TOLMAR, INC.-22US035584

PATIENT
  Age: 77 Year
  Sex: Male
  Weight: 77 kg

DRUGS (3)
  1. ELIGARD [Suspect]
     Active Substance: LEUPROLIDE ACETATE
     Indication: Product used for unknown indication
     Dosage: UNK
  2. ENZALUTAMIDE [Suspect]
     Active Substance: ENZALUTAMIDE
     Indication: Prostate cancer
     Dosage: 160 MILLIGRAM, QD
     Route: 048
     Dates: start: 201903, end: 201908
  3. ENZALUTAMIDE [Suspect]
     Active Substance: ENZALUTAMIDE
     Indication: Prostatic specific antigen increased
     Dosage: 80 MILLIGRAM, QD
     Route: 048
     Dates: start: 20220315

REACTIONS (10)
  - Weight decreased [Recovered/Resolved]
  - Pallor [Unknown]
  - Hypophagia [Recovering/Resolving]
  - Abdominal discomfort [Recovering/Resolving]
  - Decreased appetite [Recovering/Resolving]
  - Anal incontinence [Unknown]
  - Diarrhoea [Unknown]
  - Ageusia [Unknown]
  - Hot flush [Unknown]
  - Taste disorder [Unknown]

NARRATIVE: CASE EVENT DATE: 20190522
